FAERS Safety Report 23273208 (Version 2)
Quarter: 2024Q2

REPORT INFORMATION
  Report Type: Spontaneous
  Country: FR (occurrence: FR)
  Receive Date: 20231207
  Receipt Date: 20240529
  Transmission Date: 20240716
  Serious: Yes (Death, Hospitalization)
  Sender: FDA-Public Use
  Company Number: FR-LEO Pharma-365319

PATIENT
  Age: 65 Year
  Sex: Female
  Weight: 53 kg

DRUGS (2)
  1. LORLATINIB [Suspect]
     Active Substance: LORLATINIB
     Indication: Non-small cell lung cancer
     Dosage: 100 MG, 1X/DAY
     Route: 048
     Dates: start: 20230329, end: 20230620
  2. INNOHEP [Suspect]
     Active Substance: TINZAPARIN SODIUM
     Indication: Oedema peripheral
     Dosage: 900 IU
     Dates: start: 20230524, end: 20230623

REACTIONS (3)
  - Cerebral ischaemia [Fatal]
  - Neoplasm progression [Fatal]
  - Subdural haematoma [Not Recovered/Not Resolved]

NARRATIVE: CASE EVENT DATE: 20230621
